FAERS Safety Report 7482048-6 (Version None)
Quarter: 2011Q2

REPORT INFORMATION
  Report Type: 
  Country: None (occurrence: None)
  Receive Date: 20110516
  Receipt Date: 20110427
  Transmission Date: 20111010
  Serious: No
  Sender: FDA-Public Use
  Company Number: US-B.I. PHARMACEUTICALS,INC./RIDGEFIELD-2010-BP-15252BP

PATIENT
  Age: 76 Year
  Sex: Male
  Weight: 102.51 kg

DRUGS (15)
  1. PRADAXA [Suspect]
     Indication: ATRIAL FIBRILLATION
     Dosage: 300 MG
     Route: 048
     Dates: start: 20101210, end: 20101221
  2. PRADAXA [Suspect]
     Indication: HYPERTENSION
     Dosage: 300 MG
     Route: 048
     Dates: start: 20101222, end: 20101230
  3. ASPIRIN [Concomitant]
     Indication: ATRIAL FIBRILLATION
     Dosage: 325 MG
     Route: 048
     Dates: start: 20101210
  4. VITAMN B12 [Concomitant]
  5. SIMVASTATIN [Concomitant]
     Indication: PROPHYLAXIS
  6. ERGOCALCIFEROL [Concomitant]
  7. CENTRUM SILVER [Concomitant]
  8. ZINC [Concomitant]
  9. MAGNESIUM [Concomitant]
  10. PRADAXA [Suspect]
     Indication: ANTICOAGULANT THERAPY
  11. ASPIRIN [Concomitant]
     Indication: PROPHYLAXIS
  12. PROPAFENONE HCL [Concomitant]
     Indication: PROPHYLAXIS
     Dosage: 300 MG
  13. CALCIUM [Concomitant]
  14. ATENOLOL [Concomitant]
     Indication: PROPHYLAXIS
     Dosage: 25 MG
  15. RISEDRONATE [Concomitant]
     Indication: PROPHYLAXIS
     Dosage: 5 MG

REACTIONS (5)
  - RASH [None]
  - PRURITUS [None]
  - SKIN DISCOLOURATION [None]
  - FATIGUE [None]
  - MUSCULOSKELETAL STIFFNESS [None]
